FAERS Safety Report 20709592 (Version 1)
Quarter: 2022Q2

REPORT INFORMATION
  Report Type: Spontaneous
  Country: US (occurrence: US)
  Receive Date: 20220414
  Receipt Date: 20220414
  Transmission Date: 20220721
  Serious: Yes (Hospitalization, Other)
  Sender: FDA-Public Use
  Company Number: US-PFIZER INC-202200521427

PATIENT
  Age: 84 Year
  Sex: Female
  Weight: 55.782 kg

DRUGS (2)
  1. XELJANZ XR [Suspect]
     Active Substance: TOFACITINIB CITRATE
     Indication: Rheumatoid arthritis
     Dosage: 11 MG, 1X/DAY (11MG XR, TAKES ONE TABLET PER DAY BY MOUTH)
     Route: 048
  2. HYDROMORPHONE [Suspect]
     Active Substance: HYDROMORPHONE
     Indication: Pain
     Dosage: 4 MG, AS NEEDED (ONE TABLET BY MOUTH EVERY 6 HOURS AS NEEDED)
     Route: 048

REACTIONS (4)
  - Fall [Unknown]
  - Spinal stenosis [Unknown]
  - Fluid retention [Unknown]
  - Weight increased [Unknown]

NARRATIVE: CASE EVENT DATE: 20210101
